FAERS Safety Report 20217124 (Version 1)
Quarter: 2021Q4

REPORT INFORMATION
  Report Type: Spontaneous
  Country: DE (occurrence: DE)
  Receive Date: 20211222
  Receipt Date: 20211222
  Transmission Date: 20220303
  Serious: Yes (Other)
  Sender: FDA-Public Use
  Company Number: DE-PFIZER INC-202101553754

PATIENT
  Age: 42 Year
  Sex: Female

DRUGS (13)
  1. PACLITAXEL [Suspect]
     Active Substance: PACLITAXEL
     Indication: Breast cancer
     Dosage: UNK, 12XPAC
  2. TAMOXIFEN [Suspect]
     Active Substance: TAMOXIFEN
     Indication: Breast cancer
     Dosage: UNK, ADJ
  3. EPIRUBICIN [Suspect]
     Active Substance: EPIRUBICIN
     Indication: Breast cancer
     Dosage: UNK, NEOADJUVANT 4X ECDD
  4. TRASTUZUMAB [Suspect]
     Active Substance: TRASTUZUMAB
     Indication: Product used for unknown indication
     Dosage: UNK, 4X T-DM1 Q3W
     Dates: start: 20201111
  5. PERTUZUMAB [Suspect]
     Active Substance: PERTUZUMAB
     Indication: Breast cancer
     Dosage: UNK, NEOADJUVANT
  6. PERTUZUMAB [Suspect]
     Active Substance: PERTUZUMAB
     Dosage: UNK, Q3W
     Dates: start: 201911, end: 202002
  7. PERTUZUMAB [Suspect]
     Active Substance: PERTUZUMAB
     Dosage: UNK, Q3W
     Dates: start: 202002
  8. TRASTUZUMAB [Suspect]
     Active Substance: TRASTUZUMAB
     Indication: Breast cancer
     Dosage: UNK, NEOADJUVANT
  9. TRASTUZUMAB [Suspect]
     Active Substance: TRASTUZUMAB
     Dosage: UNK, Q3W
     Dates: start: 202002
  10. TRASTUZUMAB [Suspect]
     Active Substance: TRASTUZUMAB
     Dosage: UNK, Q3W
     Dates: start: 201911, end: 202002
  11. TRASTUZUMAB [Suspect]
     Active Substance: TRASTUZUMAB
     Dosage: UNK, COMPLETION OF TRASTUZUMAB AD 1 YEAR
  12. PACLITAXEL [Suspect]
     Active Substance: PACLITAXEL
     Indication: Breast cancer
     Dosage: UNK, 10X NAB-PAC WEEKLY
     Dates: start: 201911, end: 202002
  13. CYCLOPHOSPHAMIDE [Suspect]
     Active Substance: CYCLOPHOSPHAMIDE
     Indication: Breast cancer
     Dosage: UNK, NEOADJUVANT 4X ECDD

REACTIONS (3)
  - Polyneuropathy [Unknown]
  - Neoplasm progression [Unknown]
  - Off label use [Unknown]
